FAERS Safety Report 6246083-8 (Version None)
Quarter: 2009Q2

REPORT INFORMATION
  Report Type: 
  Country: None (occurrence: None)
  Receive Date: 20090626
  Receipt Date: 20090128
  Transmission Date: 20091009
  Serious: No
  Sender: FDA-Public Use
  Company Number: A0766923A

PATIENT
  Age: 58 Year
  Sex: Female
  Weight: 64.5 kg

DRUGS (6)
  1. IMITREX [Suspect]
     Indication: MIGRAINE
     Dosage: 100MG AS REQUIRED
     Route: 048
  2. HUMIRA [Suspect]
     Indication: ANKYLOSING SPONDYLITIS
     Route: 058
     Dates: start: 20080929, end: 20080929
  3. ATENOLOL [Concomitant]
     Dosage: 25MG PER DAY
  4. SEMISODIUM VALPROATE [Concomitant]
     Indication: MIGRAINE
     Dosage: 500MG TWICE PER DAY
     Route: 048
  5. INDOMETHACIN [Concomitant]
     Indication: ANKYLOSING SPONDYLITIS
     Dosage: 75MG TWICE PER DAY
     Route: 048
  6. ACETYLSALICYLIC ACID [Concomitant]
     Indication: ARRHYTHMIA
     Dosage: 325MG PER DAY
     Route: 048

REACTIONS (1)
  - CHEST DISCOMFORT [None]
